FAERS Safety Report 12084779 (Version 1)
Quarter: 2016Q1

REPORT INFORMATION
  Report Type: Spontaneous
  Country: JP (occurrence: JP)
  Receive Date: 20160217
  Receipt Date: 20160217
  Transmission Date: 20160526
  Serious: Yes (Hospitalization)
  Sender: FDA-Public Use
  Company Number: JP-PFIZER INC-2016082332

PATIENT
  Age: 40 Year
  Sex: Female

DRUGS (2)
  1. TRIAZOLAM. [Suspect]
     Active Substance: TRIAZOLAM
     Dosage: 12 MG, SINGLE
     Route: 048
  2. BROTIZOLAM [Suspect]
     Active Substance: BROTIZOLAM
     Dosage: 5 MG, SINGLE
     Route: 048

REACTIONS (2)
  - Overdose [Unknown]
  - Atrioventricular block second degree [Unknown]
